FAERS Safety Report 6448701-8 (Version None)
Quarter: 2009Q4

REPORT INFORMATION
  Report Type: 
  Country: None (occurrence: None)
  Receive Date: 20091120
  Receipt Date: 20091021
  Transmission Date: 20100525
  Serious: No
  Sender: FDA-Public Use
  Company Number: US-KINGPHARMUSA00001-K200901323

PATIENT
  Age: 73 Year
  Sex: Female

DRUGS (9)
  1. FLECTOR [Suspect]
     Dosage: UNK PATCH, UNK
     Route: 061
  2. CRESTOR [Concomitant]
  3. LEXAPRO [Concomitant]
  4. TYLENOL (CAPLET) [Concomitant]
  5. RANITIDINE [Concomitant]
  6. LORAZEPAM [Concomitant]
  7. ULTRAM ER [Concomitant]
  8. TRAZODONE HCL [Concomitant]
  9. CELEBREX [Concomitant]

REACTIONS (1)
  - ABDOMINAL DISCOMFORT [None]
